FAERS Safety Report 5385308-8 (Version None)
Quarter: 2007Q3

REPORT INFORMATION
  Report Type: 
  Country: None (occurrence: None)
  Receive Date: 20070709
  Receipt Date: 20070709
  Transmission Date: 20080115
  Serious: Yes (Hospitalization)
  Sender: FDA-Public Use
  Company Number: None

PATIENT
  Age: 67 Year
  Sex: Female
  Weight: 56 kg

DRUGS (6)
  1. PEG-INTRON [Suspect]
     Indication: HEREDITARY HAEMORRHAGIC TELANGIECTASIA
     Dosage: 80 MCG ONCE WEEKLY SQ
     Route: 058
  2. TEGRETOL [Concomitant]
  3. IRON [Concomitant]
  4. CALCIUM CHLORIDE [Concomitant]
  5. ASCORBIC ACID [Concomitant]
  6. MULTI-VITAMIN [Concomitant]

REACTIONS (3)
  - EPISTAXIS [None]
  - PYREXIA [None]
  - SYNCOPE [None]
